FAERS Safety Report 5044166-1 (Version None)
Quarter: 2006Q3

REPORT INFORMATION
  Report Type: 
  Country: None (occurrence: None)
  Receive Date: 20060706
  Receipt Date: 20060621
  Transmission Date: 20061208
  Serious: Yes (Other)
  Sender: FDA-Public Use
  Company Number: JP-MERCK-0606USA05689

PATIENT
  Age: 79 Year
  Sex: Female

DRUGS (4)
  1. COZAAR [Suspect]
     Route: 048
  2. HEPARIN SODIUM [Concomitant]
     Route: 051
  3. NAFAMOSTAT MESYLATE [Concomitant]
     Route: 051
  4. DALTEPARIN SODIUM [Concomitant]
     Route: 051

REACTIONS (1)
  - SHOCK [None]
